FAERS Safety Report 4680926-4 (Version None)
Quarter: 2005Q2

REPORT INFORMATION
  Report Type: 
  Country: None (occurrence: None)
  Receive Date: 20050601
  Receipt Date: 20050601
  Transmission Date: 20051028
  Serious: Yes (Hospitalization)
  Sender: FDA-Public Use
  Company Number: None

PATIENT
  Age: 61 Year
  Sex: Male
  Weight: 67.1324 kg

DRUGS (4)
  1. CISPLATIN [Suspect]
     Indication: METASTATIC NEOPLASM
     Dosage: 52 MG WK 1,2,4,5  INTRAVENOUS
     Route: 042
     Dates: start: 20050131, end: 20050509
  2. CISPLATIN [Suspect]
     Indication: NEOPLASM RECURRENCE
     Dosage: 52 MG WK 1,2,4,5  INTRAVENOUS
     Route: 042
     Dates: start: 20050131, end: 20050509
  3. IRINOTECAN HCL [Suspect]
     Indication: METASTATIC NEOPLASM
     Dosage: 26 MG WK 1,2,4,5  INTRAVENOUS
     Route: 042
     Dates: start: 20050131, end: 20050509
  4. IRINOTECAN HCL [Suspect]
     Indication: NEOPLASM RECURRENCE
     Dosage: 26 MG WK 1,2,4,5  INTRAVENOUS
     Route: 042
     Dates: start: 20050131, end: 20050509

REACTIONS (1)
  - CELLULITIS [None]
